FAERS Safety Report 25134099 (Version 1)
Quarter: 2025Q1

REPORT INFORMATION
  Report Type: Report from Study
  Country: US (occurrence: US)
  Receive Date: 20250328
  Receipt Date: 20250328
  Transmission Date: 20250409
  Serious: Yes (Hospitalization, Other)
  Sender: SANOFI AVENTIS
  Company Number: US-SA-SAC20240723001481

PATIENT
  Age: 73 Year
  Sex: Female

DRUGS (1)
  1. DUPILUMAB [Suspect]
     Active Substance: DUPILUMAB
     Indication: Asthma
     Dosage: 300 MG, QOW
     Route: 058
     Dates: start: 20240626

REACTIONS (7)
  - Bronchitis [Recovering/Resolving]
  - Respiratory syncytial virus infection [Recovering/Resolving]
  - Kidney infection [Unknown]
  - Blood glucose increased [Recovering/Resolving]
  - Injection site erythema [Recovered/Resolved]
  - Influenza [Unknown]
  - Cystitis [Unknown]

NARRATIVE: CASE EVENT DATE: 20240101
